FAERS Safety Report 5670998-2 (Version None)
Quarter: 2008Q1

REPORT INFORMATION
  Report Type: 
  Country: None (occurrence: None)
  Receive Date: 20080318
  Receipt Date: 20080122
  Transmission Date: 20080703
  Serious: Yes (Hospitalization, Other)
  Sender: FDA-Public Use
  Company Number: ES-ROCHE-543927

PATIENT
  Age: 61 Year
  Sex: Female

DRUGS (7)
  1. NAPROXEN [Suspect]
     Route: 065
  2. METFORMIN [Suspect]
     Indication: DIABETES MELLITUS
     Route: 065
  3. GLIBENCLAMIDE [Suspect]
     Indication: DRUG USE FOR UNKNOWN INDICATION
     Route: 065
  4. LEVOTHYROXINE SODIUM [Suspect]
     Indication: DRUG USE FOR UNKNOWN INDICATION
     Route: 065
  5. CAPTOPRIL [Suspect]
     Indication: DRUG USE FOR UNKNOWN INDICATION
     Route: 065
  6. DICLOFENAC [Suspect]
     Route: 065
  7. ROFECOXIB [Suspect]
     Route: 065

REACTIONS (3)
  - LACTIC ACIDOSIS [None]
  - METABOLIC ACIDOSIS [None]
  - RENAL FAILURE ACUTE [None]
